FAERS Safety Report 8853231 (Version 2)
Quarter: 2012Q4

REPORT INFORMATION
  Report Type: 
  Country: AT (occurrence: AT)
  Receive Date: 20121023
  Receipt Date: 20121123
  Transmission Date: 20130627
  Serious: Yes (Other)
  Sender: FDA-Public Use
  Company Number: AT-AMGEN-AUTSP2012065741

PATIENT
  Age: 10 Year
  Sex: Female
  Weight: 40 kg

DRUGS (4)
  1. ENBREL [Suspect]
     Indication: JUVENILE ARTHRITIS
     Dosage: 16 mg, 2 times/wk
  2. METHOTREXAT                        /00113801/ [Concomitant]
     Indication: JUVENILE ARTHRITIS
     Dosage: 17.5 mg, weekly
  3. PROXEN                             /00256201/ [Concomitant]
     Dosage: 250 mg, 2x/day
  4. FOLSAN [Concomitant]
     Dosage: 5 mg, weekly

REACTIONS (3)
  - Anaphylactic shock [Recovered/Resolved]
  - Injection site erythema [Recovered/Resolved]
  - Injection site induration [Recovered/Resolved]
